FAERS Safety Report 7372440-2 (Version None)
Quarter: 2011Q1

REPORT INFORMATION
  Report Type: 
  Country: None (occurrence: None)
  Receive Date: 20110316
  Receipt Date: 20110301
  Transmission Date: 20110831
  Serious: Yes (Other)
  Sender: FDA-Public Use
  Company Number: 2011S1000268

PATIENT
  Age: 66 Year
  Sex: Female
  Weight: 66 kg

DRUGS (3)
  1. FERROUS SULFATE TAB [Concomitant]
  2. LIVALO [Suspect]
     Indication: LIPIDS INCREASED
     Dosage: 2 MG;QOD;PO
     Route: 048
     Dates: start: 20101201, end: 20110201
  3. SYNTHROID [Concomitant]

REACTIONS (1)
  - BLOOD CREATINE PHOSPHOKINASE INCREASED [None]
